FAERS Safety Report 6662457 (Version 19)
Quarter: 2014Q2

REPORT INFORMATION
  Report Type: Spontaneous
  Country: US (occurrence: US)
  Receive Date: 20080611
  Receipt Date: 20140602
  Transmission Date: 20141212
  Serious: Yes (Hospitalization, Disabling, Other)
  Sender: FDA-Public Use
  Company Number: PHEH2008US05093

PATIENT
  Age: 41 Year
  Sex: Female
  Weight: 47.17 kg

DRUGS (16)
  1. AREDIA [Suspect]
     Route: 042
  2. ZOMETA [Suspect]
     Route: 042
     Dates: start: 200508, end: 200611
  3. CHEMOTHERAPEUTICS NOS [Concomitant]
     Dosage: UNK
     Dates: start: 200505, end: 200511
  4. SENOKOT                                 /UNK/ [Concomitant]
  5. ADRIAMYCIN [Concomitant]
     Indication: BREAST CANCER
  6. CYTOXAN [Concomitant]
     Indication: BREAST CANCER
  7. TAXOTERE [Concomitant]
     Indication: BREAST CANCER
  8. NEULASTA [Concomitant]
     Indication: BREAST CANCER
     Route: 065
  9. LORTAB [Concomitant]
  10. COMPAZINE [Concomitant]
  11. ARIMIDEX ^ASTRAZENECA^ [Concomitant]
  12. ZOLADEX [Concomitant]
  13. CYMBALTA [Concomitant]
     Dosage: UNK
  14. AVELOX [Concomitant]
  15. FLEXERIL [Concomitant]
     Indication: TEMPOROMANDIBULAR JOINT SYNDROME
  16. TAMOXIFEN [Concomitant]

REACTIONS (80)
  - Abdominal pain [Recovered/Resolved]
  - Colitis [Recovered/Resolved]
  - Neutropenia [Recovering/Resolving]
  - Diarrhoea [Unknown]
  - Osteonecrosis of jaw [Unknown]
  - Bone disorder [Unknown]
  - General physical health deterioration [Unknown]
  - Pain [Unknown]
  - Infection [Unknown]
  - Anxiety [Unknown]
  - Tooth erosion [Unknown]
  - Pain in jaw [Unknown]
  - Hypoaesthesia [Unknown]
  - Swelling face [Unknown]
  - Depression [Unknown]
  - Metastases to liver [Unknown]
  - Haemangioma of liver [Unknown]
  - Physical disability [Unknown]
  - Hot flush [Unknown]
  - Osteopenia [Unknown]
  - Bone pain [Unknown]
  - Sinus disorder [Unknown]
  - Splenic cyst [Unknown]
  - Pain in extremity [Unknown]
  - Amenorrhoea [Unknown]
  - Migraine [Unknown]
  - Cataract [Unknown]
  - Breast cyst [Unknown]
  - Ketonuria [Unknown]
  - Decreased appetite [Unknown]
  - Alopecia [Unknown]
  - Gastrooesophageal reflux disease [Unknown]
  - Osteoporosis [Unknown]
  - Menopause [Unknown]
  - Injury [Unknown]
  - Deformity [Unknown]
  - Overdose [Unknown]
  - Purulent discharge [Unknown]
  - Malignant neoplasm progression [Unknown]
  - Spinal osteoarthritis [Unknown]
  - Vertebral foraminal stenosis [Unknown]
  - Vision blurred [Unknown]
  - Fall [Unknown]
  - Loose tooth [Unknown]
  - Hepatic cyst [Unknown]
  - Diverticulum [Unknown]
  - Metastases to meninges [Unknown]
  - Dermatitis [Unknown]
  - Musculoskeletal pain [Unknown]
  - Metastases to lung [Not Recovered/Not Resolved]
  - Metastases to bone [Not Recovered/Not Resolved]
  - Oesophagitis [Unknown]
  - Malignant nervous system neoplasm [Unknown]
  - Asthenia [Unknown]
  - Dyspnoea [Unknown]
  - Tachycardia [Unknown]
  - Neck pain [Unknown]
  - Atelectasis [Unknown]
  - Mastoiditis [Unknown]
  - Cerebral small vessel ischaemic disease [Unknown]
  - Metastatic lymphoma [Unknown]
  - Paraesthesia [Unknown]
  - Anaemia [Unknown]
  - Vertigo [Unknown]
  - Metastases to central nervous system [Unknown]
  - Convulsion [Unknown]
  - Gait disturbance [Unknown]
  - Constipation [Unknown]
  - Musculoskeletal discomfort [Unknown]
  - Lymphadenopathy [Not Recovered/Not Resolved]
  - Joint injury [Unknown]
  - Dizziness [Unknown]
  - Oral discomfort [Unknown]
  - Mass [Unknown]
  - Hypercalcaemia [Unknown]
  - Bone lesion [Unknown]
  - Pulmonary mass [Unknown]
  - Arthralgia [Unknown]
  - Varicella [Unknown]
  - Tonsillitis [Unknown]
